FAERS Safety Report 24616509 (Version 2)
Quarter: 2025Q1

REPORT INFORMATION
  Report Type: Spontaneous
  Country: DE (occurrence: DE)
  Receive Date: 20241114
  Receipt Date: 20250114
  Transmission Date: 20250409
  Serious: Yes (Hospitalization)
  Sender: CELLTRION
  Company Number: DE-CELLTRION INC.-2024DE027692

PATIENT

DRUGS (3)
  1. YUFLYMA [Suspect]
     Active Substance: ADALIMUMAB-AATY
     Indication: Crohn^s disease
     Route: 065
     Dates: start: 20241006
  2. YUFLYMA [Suspect]
     Active Substance: ADALIMUMAB-AATY
     Route: 065
  3. MESALAMINE [Concomitant]
     Active Substance: MESALAMINE

REACTIONS (2)
  - Loss of therapeutic response [Unknown]
  - Suspected product quality issue [Unknown]
